FAERS Safety Report 8308711-2 (Version None)
Quarter: 2012Q1

REPORT INFORMATION
  Report Type: 
  Country: None (occurrence: None)
  Receive Date: 20120327
  Receipt Date: 20110210
  Transmission Date: 20120608
  Serious: Yes (Hospitalization)
  Sender: FDA-Public Use
  Company Number: PHHY2011US11700

PATIENT
  Age: 87 Year
  Sex: Male
  Weight: 87 kg

DRUGS (17)
  1. VANCOCIN HYDROCHLORIDE (VANCOMYCIN HYDROCHLORIDE) [Concomitant]
  2. FUROSEMIDE [Concomitant]
  3. NEXIUM [Concomitant]
  4. MAGNESIUM (MAGNESIUM) [Concomitant]
  5. MULTIVITAMINS (ASCORBIC ACID, ERGOCALCIFEROL, FOLIC ACID, NICOTINAMIDE [Concomitant]
  6. ACIDOPHILUS (LACTOBACILLIUS ACIDOPHILUB) [Concomitant]
  7. CALCIUM CARBONATE [Concomitant]
  8. WAFARIN SODIUM (WARFARIN SODIUM) [Concomitant]
  9. FOSAMAX D (ALENDRONATE SODIUM) [Concomitant]
  10. LIPITOR [Concomitant]
  11. VITAMIN B COMPLEX CAP [Concomitant]
  12. XOPENEX [Concomitant]
  13. SENNA (SENNA, SENNA ALEANDRINA) [Concomitant]
  14. BUDESONIDE [Concomitant]
  15. GLEEVEC [Suspect]
     Indication: CHRONIC MYELOID LEUKAEMIA
     Dosage: 400 MG, DAILY, ORAL
     Route: 048
     Dates: start: 20091001
  16. ASCORBIC ACID [Concomitant]
  17. IRON (IRON) [Concomitant]

REACTIONS (3)
  - HERPES ZOSTER [None]
  - CELLULITIS [None]
  - SWELLING FACE [None]
